FAERS Safety Report 7805154-2 (Version None)
Quarter: 2011Q4

REPORT INFORMATION
  Report Type: 
  Country: None (occurrence: None)
  Receive Date: 20111010
  Receipt Date: 20110930
  Transmission Date: 20120403
  Serious: Yes (Other)
  Sender: FDA-Public Use
  Company Number: US-BAYER-201040546NA

PATIENT
  Age: 47 Year
  Sex: Female
  Weight: 68.027 kg

DRUGS (8)
  1. LEXAPRO [Concomitant]
     Indication: ANXIETY
     Dosage: 10 MG, QD
     Route: 048
  2. YAZ [Suspect]
     Indication: MENOPAUSAL SYMPTOMS
  3. YAZ [Suspect]
     Indication: PREMENSTRUAL SYNDROME
     Dosage: UNK UNK, QD
     Route: 048
     Dates: start: 20070101, end: 20090101
  4. BUPROPION HCL [Concomitant]
     Indication: DEPRESSION
     Dosage: 100 MG, TID
     Route: 048
     Dates: start: 20090831
  5. PROTONIX [Concomitant]
  6. ALPRAZOLAM [Concomitant]
     Dosage: 0.5 MG, HS
     Route: 048
  7. TEMAZEPAM [Concomitant]
     Indication: INSOMNIA
     Dosage: 15 MG, HS
     Route: 048
  8. ATARAX [Concomitant]
     Indication: INSOMNIA
     Dosage: 25 MG, HS
     Route: 048
     Dates: start: 20090731

REACTIONS (11)
  - CHOLECYSTECTOMY [None]
  - GALLBLADDER DISORDER [None]
  - IMPAIRED HEALING [None]
  - PULMONARY EMBOLISM [None]
  - COLD SWEAT [None]
  - DYSPNOEA [None]
  - FEAR OF DEATH [None]
  - DYSPEPSIA [None]
  - PAIN [None]
  - FEAR [None]
  - PALPITATIONS [None]
